FAERS Safety Report 19705330 (Version 2)
Quarter: 2022Q2

REPORT INFORMATION
  Report Type: Spontaneous
  Country: US (occurrence: US)
  Receive Date: 20210816
  Receipt Date: 20220521
  Transmission Date: 20220721
  Serious: No
  Sender: FDA-Public Use
  Company Number: US-BRISTOL-MYERS SQUIBB COMPANY-BMS-2021-080838

PATIENT
  Age: 42 Year
  Sex: Female

DRUGS (2)
  1. SPRYCEL [Suspect]
     Active Substance: DASATINIB
     Indication: Chronic myeloid leukaemia
     Dosage: 100 MILLIGRAM, QD
     Route: 048
     Dates: start: 202106
  2. SPRYCEL [Suspect]
     Active Substance: DASATINIB
     Dosage: DAILY
     Route: 048

REACTIONS (3)
  - Chromaturia [Unknown]
  - Weight increased [Unknown]
  - Headache [Unknown]
